FAERS Safety Report 4626892-9 (Version None)
Quarter: 2005Q2

REPORT INFORMATION
  Report Type: 
  Country: None (occurrence: None)
  Receive Date: 20050405
  Receipt Date: 20031017
  Transmission Date: 20051028
  Serious: Yes (Hospitalization)
  Sender: FDA-Public Use
  Company Number: GR-BRISTOL-MYERS SQUIBB COMPANY-12413555

PATIENT
  Sex: Male

DRUGS (9)
  1. IRBESARTAN [Suspect]
     Indication: CARDIAC FAILURE
     Route: 048
     Dates: start: 20030617
  2. BLINDED: PLACEBO [Suspect]
     Indication: CARDIAC FAILURE
     Dates: start: 20030617
  3. FUROSEMIDE [Concomitant]
  4. ACENOCOUMAROL [Concomitant]
  5. ALLOPURINOL [Concomitant]
  6. AMIODARONE [Concomitant]
  7. ASPIRIN [Concomitant]
  8. INSULIN [Concomitant]
  9. ENALAPRIL [Concomitant]

REACTIONS (1)
  - ANAEMIA [None]
